FAERS Safety Report 8184827 (Version 4)
Quarter: 2012Q4

REPORT INFORMATION
  Report Type: 
  Country: JP (occurrence: JP)
  Receive Date: 20111018
  Receipt Date: 20121001
  Transmission Date: 20130627
  Serious: Yes (Death, Other)
  Sender: FDA-Public Use
  Company Number: JP-ASTELLAS-2011JP007258

PATIENT
  Age: 44 Year
  Sex: Male
  Weight: 77 kg

DRUGS (11)
  1. PROGRAF [Suspect]
     Indication: PROPHYLAXIS AGAINST GRAFT VERSUS HOST DISEASE
     Route: 042
  2. PROGRAF [Suspect]
     Indication: PROPHYLAXIS AGAINST GRAFT VERSUS HOST DISEASE
     Route: 048
  3. CORTICOSTEROID NOS [Suspect]
     Route: 065
  4. METHYLPREDNISOLONE [Suspect]
     Indication: ACUTE GRAFT VERSUS HOST DISEASE
     Dosage: 2 mg/kg, Unknown/D
     Route: 065
  5. METHYLPREDNISOLONE [Suspect]
     Dosage: 0.8 mg/kg, Unknown/D
     Route: 065
  6. METHYLPREDNISOLONE [Suspect]
     Dosage: 1000 mg, Unknown/D
     Route: 065
  7. BENAMBAX [Suspect]
     Indication: ANTIFUNGAL PROPHYLAXIS
     Dosage: 300 mg, Monthly
     Route: 055
  8. METHOTREXATE [Concomitant]
     Indication: PROPHYLAXIS AGAINST GRAFT VERSUS HOST DISEASE
     Route: 065
  9. HIDROCORTISON [Concomitant]
     Indication: ENGRAFTMENT SYNDROME
     Dosage: 100 mg, Unknown/D
     Route: 065
  10. ANTI-VIRUS AGENTS [Concomitant]
     Indication: CYTOMEGALOVIRUS GASTROENTERITIS
     Route: 065
  11. SULFAMETHOXAZOLE W/TRIMETHOPRIM [Concomitant]
     Indication: ANTIFUNGAL PROPHYLAXIS
     Dosage: 4 DF, Unknown/D
     Route: 048

REACTIONS (3)
  - Drug ineffective [Unknown]
  - Acute graft versus host disease [Unknown]
  - Toxoplasmosis [Fatal]
